FAERS Safety Report 12202794 (Version 1)
Quarter: 2016Q1

REPORT INFORMATION
  Report Type: Spontaneous
  Country: US (occurrence: US)
  Receive Date: 20160322
  Receipt Date: 20160322
  Transmission Date: 20160526
  Serious: No
  Sender: FDA-Public Use
  Company Number: US-ACTELION PHARMACEUTICALS US, INC.-A-US2016-132797

PATIENT
  Age: 72 Year
  Sex: Female

DRUGS (4)
  1. UPTRAVI [Suspect]
     Active Substance: SELEXIPAG
     Indication: PULMONARY HYPERTENSION
     Dosage: 1 TABLET, BID
     Route: 048
     Dates: start: 20160229
  2. LETAIRIS [Concomitant]
     Active Substance: AMBRISENTAN
  3. UPTRAVI [Suspect]
     Active Substance: SELEXIPAG
     Dosage: 200 MG, BID
     Route: 048
     Dates: start: 20160303
  4. ADCIRCA [Concomitant]
     Active Substance: TADALAFIL

REACTIONS (4)
  - Musculoskeletal pain [Unknown]
  - Headache [Unknown]
  - Diarrhoea [Unknown]
  - Musculoskeletal stiffness [Unknown]

NARRATIVE: CASE EVENT DATE: 20160303
